FAERS Safety Report 7753944-7 (Version None)
Quarter: 2011Q3

REPORT INFORMATION
  Report Type: 
  Country: None (occurrence: None)
  Receive Date: 20110915
  Receipt Date: 20110906
  Transmission Date: 20111222
  Serious: Yes (Hospitalization, Other)
  Sender: FDA-Public Use
  Company Number: US-ASTRAZENECA-2010SE19274

PATIENT
  Age: 76 Year
  Sex: Female

DRUGS (2)
  1. SYMBICORT [Suspect]
     Dosage: 80/4.5 MCGS UNKNOWN
     Route: 055
  2. ARIMIDEX [Suspect]
     Route: 048

REACTIONS (3)
  - INFECTED CYST [None]
  - LUNG NEOPLASM MALIGNANT [None]
  - PAIN [None]
